FAERS Safety Report 10343080 (Version 2)
Quarter: 2014Q3

REPORT INFORMATION
  Report Type: Spontaneous
  Country: BR (occurrence: BR)
  Receive Date: 20140725
  Receipt Date: 20140730
  Transmission Date: 20150326
  Serious: Yes (Other)
  Sender: FDA-Public Use
  Company Number: BR-BRISTOL-MYERS SQUIBB COMPANY-21220389

PATIENT
  Sex: Male

DRUGS (6)
  1. GLIFAGE XR [Suspect]
     Active Substance: METFORMIN HYDROCHLORIDE
     Indication: HYPERGLYCAEMIA
     Dates: start: 201402
  2. OMEPRAZOLE. [Suspect]
     Active Substance: OMEPRAZOLE
  3. CRESTOR [Suspect]
     Active Substance: ROSUVASTATIN CALCIUM
     Indication: BLOOD CHOLESTEROL ABNORMAL
     Dosage: INTER ON 2014,?RESTA ON 2014
     Dates: start: 201312
  4. AMOXIL [Suspect]
     Active Substance: AMOXICILLIN
     Indication: PNEUMONIA
     Dates: start: 201405
  5. MYFORTIC [Concomitant]
     Active Substance: MYCOPHENOLATE SODIUM
     Indication: RENAL TRANSPLANT
  6. METICORTEN [Concomitant]
     Active Substance: PREDNISONE
     Indication: RENAL TRANSPLANT

REACTIONS (7)
  - Sinusitis [Unknown]
  - Hyperglycaemia [Not Recovered/Not Resolved]
  - Glycosylated haemoglobin increased [Unknown]
  - Rhinitis [Unknown]
  - Heart rate increased [Not Recovered/Not Resolved]
  - Pneumonia [Recovered/Resolved]
  - Gamma-glutamyltransferase abnormal [Unknown]

NARRATIVE: CASE EVENT DATE: 2014
